FAERS Safety Report 10781581 (Version 1)
Quarter: 2015Q1

REPORT INFORMATION
  Report Type: Report from Study
  Country: BR (occurrence: BR)
  Receive Date: 20150210
  Receipt Date: 20150210
  Transmission Date: 20150721
  Serious: Yes (Other)
  Sender: FDA-Public Use
  Company Number: BR-ABBVIE-15K-020-1343111-00

PATIENT
  Age: 39 Year
  Sex: Female
  Weight: 57 kg

DRUGS (4)
  1. HUMIRA [Suspect]
     Active Substance: ADALIMUMAB
     Indication: RHEUMATOID ARTHRITIS
     Route: 058
     Dates: start: 20120821, end: 20140115
  2. CORTICORTEN [Concomitant]
     Indication: ARTHRITIS
     Route: 048
     Dates: start: 201402, end: 201408
  3. METHOTREXATE [Concomitant]
     Active Substance: METHOTREXATE
     Indication: PAIN
     Route: 048
     Dates: start: 2006
  4. PAMELOR [Concomitant]
     Active Substance: NORTRIPTYLINE HYDROCHLORIDE
     Indication: PAIN
     Route: 048

REACTIONS (7)
  - Blindness unilateral [Not Recovered/Not Resolved]
  - Eye penetration [Not Recovered/Not Resolved]
  - Depression [Unknown]
  - Road traffic accident [Not Recovered/Not Resolved]
  - Dry eye [Unknown]
  - Sleep disorder [Unknown]
  - Intraocular pressure increased [Unknown]

NARRATIVE: CASE EVENT DATE: 20140129
